FAERS Safety Report 17157130 (Version 1)
Quarter: 2019Q4

REPORT INFORMATION
  Report Type: Spontaneous
  Country: US (occurrence: US)
  Receive Date: 20191216
  Receipt Date: 20191216
  Transmission Date: 20200122
  Serious: No
  Sender: FDA-Public Use
  Company Number: US-AUROBINDO-AUR-APL-2019-022200

PATIENT

DRUGS (2)
  1. MIRTAZAPINE TABLETS 30 MG [Suspect]
     Active Substance: MIRTAZAPINE
     Indication: ANXIETY
     Dosage: HALF A TABLET ONCE A DAY DURING BED TIME
     Route: 065
  2. MIRTAZAPINE TABLETS 30 MG [Suspect]
     Active Substance: MIRTAZAPINE
     Indication: INSOMNIA

REACTIONS (5)
  - Constipation [Unknown]
  - Hallucination [Unknown]
  - Dry mouth [Unknown]
  - Dizziness [Unknown]
  - Abnormal dreams [Unknown]
